FAERS Safety Report 5028688-5 (Version None)
Quarter: 2006Q2

REPORT INFORMATION
  Report Type: 
  Country: None (occurrence: None)
  Receive Date: 20060619
  Receipt Date: 20060607
  Transmission Date: 20061013
  Serious: Yes (Death)
  Sender: FDA-Public Use
  Company Number: CA-JNJFOC-20050102231

PATIENT
  Sex: Male

DRUGS (2)
  1. DURAGESIC-100 [Suspect]
     Indication: INTENTIONAL DRUG MISUSE
     Route: 062
  2. LITHIUM CARBONATE [Concomitant]
     Indication: BIPOLAR I DISORDER

REACTIONS (3)
  - DRUG ABUSER [None]
  - INTENTIONAL OVERDOSE [None]
  - NARCOTIC INTOXICATION [None]
